FAERS Safety Report 18340696 (Version 1)
Quarter: 2020Q4

REPORT INFORMATION
  Report Type: Spontaneous
  Country: NL (occurrence: NL)
  Receive Date: 20201002
  Receipt Date: 20201002
  Transmission Date: 20210113
  Serious: Yes (Hospitalization)
  Sender: FDA-Public Use
  Company Number: NL-AUROBINDO-AUR-APL-2017-17850

PATIENT
  Age: 75 Year
  Sex: Male

DRUGS (10)
  1. MOVICOLON [Concomitant]
     Active Substance: POLYETHYLENE GLYCOL 3350\POTASSIUM CHLORIDE\SODIUM BICARBONATE\SODIUM CHLORIDE
     Indication: PRODUCT USED FOR UNKNOWN INDICATION
     Dosage: 1 DF, ONCE A DAY
     Route: 065
     Dates: start: 20111219, end: 20111223
  2. VERAPAMIL [Concomitant]
     Active Substance: VERAPAMIL HYDROCHLORIDE
     Indication: PRODUCT USED FOR UNKNOWN INDICATION
     Dosage: 240 MG, ONCE A DAY
     Route: 065
     Dates: start: 20040122
  3. CARBASALAATCALCIUM CARDIO [Concomitant]
     Active Substance: CARBASPIRIN CALCIUM
     Indication: PRODUCT USED FOR UNKNOWN INDICATION
     Dosage: 100 MG, ONCE A DAY
     Route: 065
     Dates: start: 20100624, end: 20111223
  4. CIPROFLOXACIN. [Suspect]
     Active Substance: CIPROFLOXACIN
     Indication: DIVERTICULITIS
     Dosage: 500 MG, TWO TIMES A DAY
     Route: 065
     Dates: start: 20111222, end: 20111223
  5. FUROSEMIDE. [Concomitant]
     Active Substance: FUROSEMIDE
     Indication: PRODUCT USED FOR UNKNOWN INDICATION
     Dosage: 40 MG, ONCE A DAY
     Route: 065
     Dates: start: 20040122
  6. NEBILET [Concomitant]
     Active Substance: NEBIVOLOL
     Indication: PRODUCT USED FOR UNKNOWN INDICATION
     Dosage: 5 MG, ONCE A DAY
     Route: 065
     Dates: start: 20040122
  7. PARACETAMOL [Suspect]
     Active Substance: ACETAMINOPHEN
     Indication: HYPERCHOLESTEROLAEMIA
     Dosage: DOSE NOT STATED
     Route: 065
     Dates: start: 20111219, end: 20111223
  8. SPIRIVA [Concomitant]
     Active Substance: TIOTROPIUM BROMIDE MONOHYDRATE
     Indication: PRODUCT USED FOR UNKNOWN INDICATION
     Dosage: 18 ?G, ONCE A DAY
     Route: 055
  9. SIMVASTATIN. [Suspect]
     Active Substance: SIMVASTATIN
     Indication: HYPERCHOLESTEROLAEMIA
     Dosage: 20 MG, ONCE A DAY
     Route: 065
     Dates: start: 20110623, end: 20111224
  10. LANOXIN [Concomitant]
     Active Substance: DIGOXIN
     Indication: PRODUCT USED FOR UNKNOWN INDICATION
     Dosage: 0.125 MG, ONCE A DAY
     Route: 065
     Dates: start: 2003, end: 20111223

REACTIONS (1)
  - Jaundice cholestatic [Recovering/Resolving]

NARRATIVE: CASE EVENT DATE: 20111223
